FAERS Safety Report 13336951 (Version 1)
Quarter: 2017Q1

REPORT INFORMATION
  Report Type: Report from Study
  Country: NZ (occurrence: NZ)
  Receive Date: 20170314
  Receipt Date: 20170314
  Transmission Date: 20170428
  Serious: Yes (Other)
  Sender: FDA-Public Use
  Company Number: PHHY2017NZ033967

PATIENT
  Sex: Male

DRUGS (4)
  1. OMNITROPE [Suspect]
     Active Substance: SOMATROPIN
     Indication: GROWTH HORMONE DEFICIENCY
     Dosage: 0.7 MG, UNK
     Route: 065
  2. HYDROCORTISONE. [Concomitant]
     Active Substance: HYDROCORTISONE
     Indication: GROWTH HORMONE DEFICIENCY
     Dosage: 3.75 MG IN MORNING, 1.25 MG IN AFTERNOON AND 2.5 MG AT NIGHT
     Route: 065
  3. THYROXINE [Concomitant]
     Active Substance: LEVOTHYROXINE
     Indication: PRODUCT USED FOR UNKNOWN INDICATION
     Dosage: 100 UG, QD
     Route: 065
  4. HYDROCORTISONE. [Concomitant]
     Active Substance: HYDROCORTISONE
     Dosage: 5 MG IN MORNING, 1.25 MG IN AFTERNOON AND 2.5 MG AT NIGHT
     Route: 065

REACTIONS (3)
  - Visual impairment [Unknown]
  - Aggression [Unknown]
  - Circadian rhythm sleep disorder [Unknown]
